FAERS Safety Report 14356293 (Version 1)
Quarter: 2018Q1

REPORT INFORMATION
  Report Type: Spontaneous
  Country: US (occurrence: US)
  Receive Date: 20180105
  Receipt Date: 20180105
  Transmission Date: 20180509
  Serious: No
  Sender: FDA-Public Use
  Company Number: US-ALLERGAN-1735719US

PATIENT
  Age: 57 Year
  Sex: Male

DRUGS (1)
  1. KYBELLA [Suspect]
     Active Substance: DEOXYCHOLIC ACID
     Indication: FAT TISSUE INCREASED
     Dosage: 11 ML, SINGLE
     Route: 058
     Dates: start: 20170808, end: 20170808

REACTIONS (1)
  - Nerve injury [Recovering/Resolving]

NARRATIVE: CASE EVENT DATE: 20170808
